FAERS Safety Report 7828005-9 (Version None)
Quarter: 2011Q4

REPORT INFORMATION
  Report Type: 
  Country: None (occurrence: None)
  Receive Date: 20111020
  Receipt Date: 20111012
  Transmission Date: 20120403
  Serious: Yes (Hospitalization)
  Sender: FDA-Public Use
  Company Number: US-GLAXOSMITHKLINE-A0845694A

PATIENT
  Age: 62 Year
  Sex: Female
  Weight: 134.1 kg

DRUGS (6)
  1. VISTARIL [Concomitant]
  2. CELEBREX [Concomitant]
  3. ALTACE [Concomitant]
  4. AVANDIA [Suspect]
     Indication: DIABETES MELLITUS
     Dosage: 4MG PER DAY
     Route: 048
     Dates: start: 20021016, end: 20070621
  5. PREVACID [Concomitant]
  6. LEVOXYL [Concomitant]

REACTIONS (3)
  - MYOCARDIAL ISCHAEMIA [None]
  - CARDIAC FAILURE CONGESTIVE [None]
  - RESPIRATORY FAILURE [None]
